FAERS Safety Report 24304009 (Version 1)
Quarter: 2024Q3

REPORT INFORMATION
  Report Type: Spontaneous
  Country: JP (occurrence: JP)
  Receive Date: 20240910
  Receipt Date: 20240910
  Transmission Date: 20241017
  Serious: Yes (Hospitalization, Other)
  Sender: Steriscience PTE
  Company Number: JP-STERISCIENCE B.V.-2024-ST-001334

PATIENT
  Age: 65 Year
  Sex: Female

DRUGS (5)
  1. MEROPENEM [Suspect]
     Active Substance: MEROPENEM
     Indication: Evidence based treatment
     Dosage: 0.5 GRAM, QD
     Route: 042
  2. MEROPENEM [Suspect]
     Active Substance: MEROPENEM
     Indication: Enterococcal infection
     Dosage: UNK
     Route: 065
  3. VANCOMYCIN [Suspect]
     Active Substance: VANCOMYCIN
     Indication: Enterococcal infection
     Dosage: 1 GRAM, ON DAY 8 OF TREATMENT
     Route: 042
  4. VANCOMYCIN [Suspect]
     Active Substance: VANCOMYCIN
     Dosage: 0.5 GRAM, ON DAY 8 OF TREATMENT
     Route: 042
  5. AMPICILLIN [Suspect]
     Active Substance: AMPICILLIN
     Indication: Enterococcal infection
     Dosage: 1 GRAM, BID, ON DAY 25 OF TREATMENT
     Route: 042

REACTIONS (4)
  - Peritoneal effluent leukocyte count increased [Recovered/Resolved]
  - Pancytopenia [Unknown]
  - Drug level decreased [Unknown]
  - Drug ineffective [Unknown]
